FAERS Safety Report 5429072-2 (Version None)
Quarter: 2007Q3

REPORT INFORMATION
  Report Type: 
  Country: None (occurrence: None)
  Receive Date: 20070827
  Receipt Date: 20070812
  Transmission Date: 20080115
  Serious: Yes (Other)
  Sender: FDA-Public Use
  Company Number: 8026170

PATIENT
  Age: 17 Year
  Sex: Female

DRUGS (1)
  1. KEPPRA [Suspect]
     Dosage: 25 G ONCE PO
     Route: 048

REACTIONS (2)
  - FATIGUE [None]
  - INCORRECT DOSE ADMINISTERED [None]
